FAERS Safety Report 9676126 (Version 1)
Quarter: 2013Q4

REPORT INFORMATION
  Report Type: Spontaneous
  Country: CN (occurrence: CN)
  Receive Date: 20131107
  Receipt Date: 20131107
  Transmission Date: 20140711
  Serious: Yes (Hospitalization, Other)
  Sender: FDA-Public Use
  Company Number: CN-WATSON-2013-19901

PATIENT
  Age: 51 Year
  Sex: Female

DRUGS (2)
  1. CLARITHROMYCIN (UNKNOWN) [Suspect]
     Indication: HELICOBACTER GASTRITIS
     Dosage: 500 MG, SINGLE
     Route: 065
     Dates: start: 20111205, end: 20111205
  2. RABEPRAZOLE [Suspect]
     Indication: HELICOBACTER GASTRITIS
     Dosage: 10 MG, SINGLE
     Route: 065
     Dates: start: 20111205, end: 20111205

REACTIONS (2)
  - Acute psychosis [Recovered/Resolved]
  - Drug interaction [Recovered/Resolved]
